FAERS Safety Report 17326358 (Version 3)
Quarter: 2020Q2

REPORT INFORMATION
  Report Type: Spontaneous
  Country: US (occurrence: US)
  Receive Date: 20200127
  Receipt Date: 20200504
  Transmission Date: 20200713
  Serious: No
  Sender: FDA-Public Use
  Company Number: US-PFIZER INC-2020033003

PATIENT
  Age: 45 Year
  Sex: Male
  Weight: 77.11 kg

DRUGS (10)
  1. TACROLIMUS. [Concomitant]
     Active Substance: TACROLIMUS
     Indication: HEART TRANSPLANT
     Dosage: 1 MG, 2X/DAY
     Dates: start: 20120110
  2. VITAMIN B-COMPLEX [Concomitant]
     Active Substance: DEXPANTHENOL\NIACINAMIDE\PYRIDOXINE HYDROCHLORIDE\RIBOFLAVIN 5^-PHOSPHATE SODIUM\THIAMINE HYDROCHLORIDE
     Dosage: UNK, DAILY
  3. SIROLIMUS. [Suspect]
     Active Substance: SIROLIMUS
     Indication: HEART TRANSPLANT
     Dosage: 1 MG, 1X/DAY(2TABLETS ONCE A DAY AM)
     Dates: start: 20120110
  4. COQ10 [UBIDECARENONE] [Concomitant]
     Active Substance: UBIDECARENONE
     Dosage: UNK, 2X/DAY
  5. PREDNISONE. [Concomitant]
     Active Substance: PREDNISONE
     Indication: CARDIAC DISORDER
     Dosage: 5 MG, 1X/DAY
     Dates: start: 19910214
  6. PROBIOTIC 10 [Concomitant]
     Active Substance: DIETARY SUPPLEMENT\PROBIOTICS
     Dosage: UNK (ONCE)
  7. ASPIRIN 81 [Concomitant]
     Active Substance: ASPIRIN
     Dosage: UNK (ONCE)
  8. VITAMIN D2 [Concomitant]
     Active Substance: ERGOCALCIFEROL
     Dosage: UNK, 2X/WEEK
  9. VASOTEC [Concomitant]
     Active Substance: ENALAPRIL MALEATE
     Dosage: 8.5 MG, DAILY [3.5 MGA.M., 5MG P.M]
  10. FISH OIL [Concomitant]
     Active Substance: FISH OIL
     Dosage: UNK

REACTIONS (3)
  - Malabsorption [Recovered/Resolved]
  - Product use in unapproved indication [Unknown]
  - Off label use [Unknown]

NARRATIVE: CASE EVENT DATE: 20120110
